FAERS Safety Report 9355505 (Version 1)
Quarter: 2013Q2

REPORT INFORMATION
  Report Type: Spontaneous
  Country: US (occurrence: US)
  Receive Date: 20130619
  Receipt Date: 20130619
  Transmission Date: 20140414
  Serious: No
  Sender: FDA-Public Use
  Company Number: US-SANOFI-AVENTIS-2013SA059975

PATIENT
  Age: 79 Year
  Sex: Male

DRUGS (2)
  1. MULTAQ [Suspect]
  2. PRADAXA [Concomitant]

REACTIONS (3)
  - Contusion [Recovered/Resolved]
  - Epistaxis [Recovered/Resolved]
  - Blood creatinine increased [Recovered/Resolved]
